FAERS Safety Report 18641890 (Version 1)
Quarter: 2020Q4

REPORT INFORMATION
  Report Type: Spontaneous
  Country: VN (occurrence: VN)
  Receive Date: 20201221
  Receipt Date: 20201221
  Transmission Date: 20210114
  Serious: Yes (Other)
  Sender: FDA-Public Use
  Company Number: NVSC2020VN336956

PATIENT

DRUGS (4)
  1. OXALIPLATIN. [Suspect]
     Active Substance: OXALIPLATIN
     Indication: ADENOCARCINOMA GASTRIC
     Dosage: 85 MG/M2, CYCLIC N FOR 2 HOURS ON DAY 1 OF 14 DAY CYCLE ON SKIN AREA
     Route: 042
  2. DOCETAXEL. [Suspect]
     Active Substance: DOCETAXEL
     Indication: ADENOCARCINOMA GASTRIC
     Dosage: 50 MG/M2, CYCLIC FOR 1 HOUR ON DAY 1 OF 14 DAY CYCLE ON SKIN AREA
     Route: 042
  3. FLUOROURACIL. [Suspect]
     Active Substance: FLUOROURACIL
     Indication: ADENOCARCINOMA GASTRIC
     Dosage: 2600 MG/M2  FOR 24 HOURS ON DAY 1 OF 14 DAY CYCLE ON SKIN AREA
     Route: 042
  4. CALCIUM FOLINATE [Concomitant]
     Active Substance: LEUCOVORIN CALCIUM
     Indication: ADENOCARCINOMA GASTRIC
     Dosage: 200 MG/M2, CYCLIC FOR 2 HOURS ON DAY 1 OF 14 DAY CYCLE ON SKIN AREA
     Route: 042

REACTIONS (2)
  - Leukopenia [Unknown]
  - Product use in unapproved indication [Unknown]
